FAERS Safety Report 7798300-0 (Version None)
Quarter: 2011Q4

REPORT INFORMATION
  Report Type: 
  Country: None (occurrence: None)
  Receive Date: 20111005
  Receipt Date: 20110928
  Transmission Date: 20120403
  Serious: Yes (Life-Threatening)
  Sender: FDA-Public Use
  Company Number: US-BAYER-2011-092568

PATIENT
  Sex: Female

DRUGS (1)
  1. AVELOX [Suspect]
     Dosage: 1 DF, QD
     Route: 048
     Dates: start: 20080101, end: 20110103

REACTIONS (4)
  - PRURITUS [None]
  - URTICARIA [None]
  - WHEEZING [None]
  - NAUSEA [None]
